FAERS Safety Report 12210108 (Version 3)
Quarter: 2016Q2

REPORT INFORMATION
  Report Type: Report from Study
  Country: NL (occurrence: NL)
  Receive Date: 20160325
  Receipt Date: 20160505
  Transmission Date: 20160815
  Serious: Yes (Hospitalization, Other)
  Sender: FDA-Public Use
  Company Number: PHHY2016NL028943

PATIENT
  Age: 43 Year
  Sex: Female

DRUGS (2)
  1. GILENYA [Suspect]
     Active Substance: FINGOLIMOD HYDROCHLORIDE
     Indication: MULTIPLE SCLEROSIS
     Dosage: 0.5 MG, QD
     Route: 048
     Dates: start: 20160108, end: 20160307
  2. FAMPRIDINE [Suspect]
     Active Substance: DALFAMPRIDINE
     Indication: MULTIPLE SCLEROSIS
     Dosage: 5 MG, (1DD1.5 TABLETS)
     Route: 065
     Dates: start: 20130402

REACTIONS (7)
  - Swelling face [Recovering/Resolving]
  - Lymphopenia [Recovered/Resolved]
  - Weight increased [Recovering/Resolving]
  - Malaise [Recovered/Resolved]
  - Fluid retention [Unknown]
  - Hypertension [Recovering/Resolving]
  - Hypothermia [Recovered/Resolved]

NARRATIVE: CASE EVENT DATE: 20160212
